FAERS Safety Report 5034619-4 (Version None)
Quarter: 2006Q2

REPORT INFORMATION
  Report Type: 
  Country: None (occurrence: None)
  Receive Date: 20060621
  Receipt Date: 20051019
  Transmission Date: 20061013
  Serious: Yes (Hospitalization)
  Sender: FDA-Public Use
  Company Number: PHBS2005TR13913

PATIENT
  Age: 23 Year
  Sex: Male

DRUGS (1)
  1. BACLOFEN                         INTRATHECAL (BACLOFEN) AMPOULE [Suspect]
     Indication: MUSCLE SPASTICITY
     Dosage: 60 MCG/DAY INTRATHECAL
     Route: 037

REACTIONS (5)
  - AREFLEXIA [None]
  - BLOOD PRESSURE INCREASED [None]
  - DRUG WITHDRAWAL SYNDROME [None]
  - MUSCLE SPASTICITY [None]
  - PRURITUS [None]
